FAERS Safety Report 10494436 (Version 3)
Quarter: 2014Q4

REPORT INFORMATION
  Report Type: Spontaneous
  Country: DE (occurrence: DE)
  Receive Date: 20141003
  Receipt Date: 20141027
  Transmission Date: 20150528
  Serious: Yes (Other)
  Sender: FDA-Public Use
  Company Number: DE-JNJFOC-20140900772

PATIENT
  Age: 56 Year
  Sex: Male
  Weight: 83 kg

DRUGS (8)
  1. AMITRIPTYLIN [Concomitant]
     Active Substance: AMITRIPTYLINE
     Route: 048
     Dates: start: 201403
  2. PALEXIA [Suspect]
     Active Substance: TAPENTADOL HYDROCHLORIDE
     Indication: PRODUCT USED FOR UNKNOWN INDICATION
     Route: 048
     Dates: start: 20140318, end: 20140320
  3. NOVAMINSULFON [Concomitant]
     Active Substance: METAMIZOLE
     Route: 048
     Dates: start: 2013
  4. DICLOFENAC [Concomitant]
     Active Substance: DICLOFENAC
     Route: 048
  5. CARBAMAZEPIN [Concomitant]
     Active Substance: CARBAMAZEPINE
     Route: 048
     Dates: start: 20140305
  6. LYRICA [Concomitant]
     Active Substance: PREGABALIN
     Route: 048
     Dates: start: 2013
  7. PANTOPRAZOLE [Concomitant]
     Active Substance: PANTOPRAZOLE SODIUM
     Route: 048
     Dates: start: 2013
  8. IBUPROFEN. [Concomitant]
     Active Substance: IBUPROFEN
     Route: 048

REACTIONS (5)
  - Restlessness [Recovered/Resolved]
  - Diplopia [Recovered/Resolved]
  - Agitation [Recovered/Resolved]
  - Feeling abnormal [Recovered/Resolved]
  - Mental status changes [Recovered/Resolved]

NARRATIVE: CASE EVENT DATE: 20140318
